FAERS Safety Report 9773310 (Version 1)
Quarter: 2013Q4

REPORT INFORMATION
  Report Type: Spontaneous
  Country: US (occurrence: US)
  Receive Date: 20131219
  Receipt Date: 20131219
  Transmission Date: 20140711
  Serious: Yes (Other)
  Sender: FDA-Public Use
  Company Number: US-TEVA-451858USA

PATIENT
  Age: 60 Year
  Sex: Male

DRUGS (11)
  1. METHOTREXATE [Suspect]
     Indication: PROPHYLACTIC CHEMOTHERAPY
     Dosage: A 13725MG (7G/M2) INFUSION OVER 4 HOURS
     Route: 041
  2. CYCLOPHOSPHAMIDE [Concomitant]
     Indication: PROPHYLACTIC CHEMOTHERAPY
     Route: 065
  3. VINCRISTINE [Concomitant]
     Indication: PROPHYLACTIC CHEMOTHERAPY
     Route: 065
  4. PREDNISONE [Concomitant]
     Indication: PROPHYLACTIC CHEMOTHERAPY
     Route: 065
  5. ASPIRIN [Concomitant]
     Route: 065
  6. METOPROLOL [Concomitant]
     Route: 065
  7. FUROSEMIDE [Concomitant]
     Dosage: 40-80MG DAY
     Route: 048
  8. FUROSEMIDE [Concomitant]
     Dosage: 40-80MG/DAY
     Route: 042
  9. RITUXIMAB [Concomitant]
     Indication: PROPHYLACTIC CHEMOTHERAPY
     Route: 065
  10. SODIUM BICARBONATE [Concomitant]
     Dosage: 150 MEQ/L AT A RATE OF 125-200 ML/H
     Route: 041
  11. DOXORUBICIN [Concomitant]
     Indication: PROPHYLACTIC CHEMOTHERAPY
     Route: 065

REACTIONS (2)
  - Nephropathy toxic [Recovered/Resolved]
  - Cardiac failure [Unknown]
